FAERS Safety Report 12434193 (Version 1)
Quarter: 2016Q2

REPORT INFORMATION
  Report Type: Report from Study
  Country: BR (occurrence: BR)
  Receive Date: 20160603
  Receipt Date: 20160603
  Transmission Date: 20160815
  Serious: Yes (Other)
  Sender: FDA-Public Use
  Company Number: ALCN2016BR003188

PATIENT
  Sex: Female

DRUGS (2)
  1. DUOTRAV BAC-FREE [Suspect]
     Active Substance: TIMOLOL\TRAVOPROST
     Indication: GLAUCOMA
     Dosage: UNK
     Route: 047
  2. INSULIN [Concomitant]
     Active Substance: INSULIN NOS
     Indication: DIABETES MELLITUS
     Dosage: UNK
     Route: 065

REACTIONS (5)
  - Visual impairment [Unknown]
  - Retinal aneurysm [Not Recovered/Not Resolved]
  - Eye pain [Recovering/Resolving]
  - Inappropriate schedule of drug administration [Unknown]
  - Ocular hyperaemia [Recovering/Resolving]
